FAERS Safety Report 8534510-2 (Version None)
Quarter: 2012Q3

REPORT INFORMATION
  Report Type: 
  Country: None (occurrence: None)
  Receive Date: 20120724
  Receipt Date: 20120717
  Transmission Date: 20120928
  Serious: Yes (Hospitalization)
  Sender: FDA-Public Use
  Company Number: JP-VERTEX PHARMACEUTICALS INC.-AE-2012-003588

PATIENT
  Age: 50 Year
  Sex: Male

DRUGS (10)
  1. RIBAVIRIN [Concomitant]
     Indication: HEPATITIS C
     Route: 048
     Dates: start: 20120119, end: 20120215
  2. NEXIUM [Concomitant]
     Route: 048
     Dates: start: 20120310
  3. RIBAVIRIN [Concomitant]
     Route: 048
     Dates: start: 20120216, end: 20120305
  4. PEGINTERFERON ALFA-2A [Concomitant]
     Route: 058
     Dates: start: 20120322, end: 20120628
  5. RIBAVIRIN [Concomitant]
     Route: 048
     Dates: start: 20120405, end: 20120523
  6. XYZAL [Concomitant]
     Route: 048
     Dates: start: 20120130, end: 20120229
  7. RIBAVIRIN [Concomitant]
     Route: 048
     Dates: start: 20120308, end: 20120404
  8. PEGINTERFERON ALFA-2A [Concomitant]
     Indication: HEPATITIS C
     Route: 058
     Dates: start: 20120119, end: 20120308
  9. TELAVIC (TELAPREVIR) [Suspect]
     Indication: HEPATITIS C
     Route: 048
     Dates: start: 20120119, end: 20120305
  10. ALLEGRA [Concomitant]
     Route: 048
     Dates: start: 20120301, end: 20120315

REACTIONS (1)
  - DRUG ERUPTION [None]
